FAERS Safety Report 4583406-X (Version None)
Quarter: 2005Q1

REPORT INFORMATION
  Report Type: 
  Country: None (occurrence: None)
  Receive Date: 20050125
  Receipt Date: 20041208
  Transmission Date: 20050727
  Serious: No
  Sender: FDA-Public Use
  Company Number: USA041080338

PATIENT
  Age: 61 Year
  Sex: Female

DRUGS (1)
  1. FORTEO [Suspect]
     Indication: OSTEOPOROSIS
     Dosage: 20 UG
     Dates: start: 20040807

REACTIONS (7)
  - ABDOMINAL PAIN UPPER [None]
  - DRY MOUTH [None]
  - INJECTION SITE HAEMORRHAGE [None]
  - KIDNEY INFECTION [None]
  - PHARYNGOLARYNGEAL PAIN [None]
  - PYREXIA [None]
  - SPEECH DISORDER [None]
